FAERS Safety Report 20065396 (Version 1)
Quarter: 2021Q4

REPORT INFORMATION
  Report Type: Spontaneous
  Country: US (occurrence: None)
  Receive Date: 20211113
  Receipt Date: 20211113
  Transmission Date: 20220303
  Serious: Yes (Hospitalization, Disabling, Other)
  Sender: FDA-Public Use
  Company Number: US-MICRO LABS LIMITED-ML2021-03298

PATIENT
  Age: 55 Year
  Sex: Male

DRUGS (2)
  1. APIXABAN [Suspect]
     Active Substance: APIXABAN
     Indication: Deep vein thrombosis
     Dosage: 10 MG TWICE DAILY FOR 7 DAYS
  2. APIXABAN [Suspect]
     Active Substance: APIXABAN
     Dosage: 5MG TWICE DAILY FOR 7 DAYS

REACTIONS (2)
  - Haemorrhagic cholecystitis [Unknown]
  - Haemobilia [Unknown]
